FAERS Safety Report 4341396-9 (Version None)
Quarter: 2004Q2

REPORT INFORMATION
  Report Type: 
  Country: None (occurrence: None)
  Receive Date: 20040413
  Receipt Date: 20040323
  Transmission Date: 20050107
  Serious: Yes (Hospitalization)
  Sender: FDA-Public Use
  Company Number: 28039

PATIENT
  Age: 63 Year
  Sex: Male

DRUGS (7)
  1. NEOMYCIN SULFATE, POLYMYXIN B, DEXAMETHASONE SUSPENSION [Suspect]
     Indication: CONJUNCTIVITIS
     Route: 047
  2. PREDNISOLONE ACETATE [Suspect]
     Route: 047
  3. BUPRENORPHINE HYDROCHLORIDE [Suspect]
  4. KETOROLAC TROMETHAMINE [Suspect]
     Route: 047
  5. FEXOFENADINE HCL [Suspect]
     Route: 047
  6. PREDNISOLONE SODIUM PHOSPHATE [Suspect]
  7. SULFOBENZOATE [Suspect]

REACTIONS (13)
  - CONJUNCTIVITIS [None]
  - CONJUNCTIVITIS ALLERGIC [None]
  - DERMATITIS CONTACT [None]
  - EYELID OEDEMA [None]
  - FACE OEDEMA [None]
  - LEUKOCYTOCLASTIC VASCULITIS [None]
  - OEDEMA PERIPHERAL [None]
  - PALLANAESTHESIA [None]
  - PRURITUS GENERALISED [None]
  - RASH GENERALISED [None]
  - RASH MACULO-PAPULAR [None]
  - RASH PUSTULAR [None]
  - THROMBOSIS [None]
